FAERS Safety Report 14330845 (Version 1)
Quarter: 2017Q4

REPORT INFORMATION
  Report Type: Report from Study
  Country: None (occurrence: BR)
  Receive Date: 20171228
  Receipt Date: 20171228
  Transmission Date: 20180321
  Serious: Yes (Other)
  Sender: FDA-Public Use
  Company Number: BR-ABBVIE-17K-020-2108330-00

PATIENT
  Age: 39 Year
  Sex: Female
  Weight: 65 kg

DRUGS (9)
  1. HUMIRA [Suspect]
     Active Substance: ADALIMUMAB
     Indication: CROHN^S DISEASE
     Dosage: LOADING DOSE : WEEK 0
     Route: 058
     Dates: start: 20170331, end: 20170331
  2. AEROLIN [Concomitant]
     Active Substance: ALBUTEROL
     Indication: ASTHMATIC CRISIS
  3. HUMIRA [Suspect]
     Active Substance: ADALIMUMAB
     Route: 058
     Dates: start: 2017, end: 20170703
  4. ZINNAT [Concomitant]
     Active Substance: CEFUROXIME AXETIL
     Indication: PRODUCT USED FOR UNKNOWN INDICATION
  5. PURAN [Concomitant]
     Active Substance: LEVOTHYROXINE SODIUM
     Indication: HYPOTHYROIDISM
  6. HUMIRA [Suspect]
     Active Substance: ADALIMUMAB
     Dosage: LOADING DOSE : WEEK 2
     Route: 058
     Dates: start: 20170414, end: 20170414
  7. TECNOMET [Concomitant]
     Active Substance: METHOTREXATE
     Indication: CROHN^S DISEASE
  8. NASONEX [Concomitant]
     Active Substance: MOMETASONE FUROATE
     Indication: PRODUCT USED FOR UNKNOWN INDICATION
  9. FOSTER [Concomitant]
     Active Substance: BECLOMETHASONE\FORMOTEROL
     Indication: PRODUCT USED FOR UNKNOWN INDICATION

REACTIONS (2)
  - Asthmatic crisis [Unknown]
  - Bronchitis [Recovered/Resolved]

NARRATIVE: CASE EVENT DATE: 201706
